FAERS Safety Report 5700940-7 (Version None)
Quarter: 2008Q2

REPORT INFORMATION
  Report Type: 
  Country: None (occurrence: None)
  Receive Date: 20080410
  Receipt Date: 20080404
  Transmission Date: 20081010
  Serious: Yes (Hospitalization)
  Sender: FDA-Public Use
  Company Number: B0515672A

PATIENT
  Age: 44 Year
  Sex: Female

DRUGS (3)
  1. KIVEXA [Suspect]
     Indication: HIV INFECTION
     Dosage: 1TAB PER DAY
     Route: 048
     Dates: start: 20071001
  2. TMC125 [Suspect]
     Indication: HIV INFECTION
     Route: 048
     Dates: start: 20071001
  3. RALTEGRAVIR [Suspect]
     Indication: HIV INFECTION
     Dosage: 1TAB TWICE PER DAY
     Route: 048
     Dates: start: 20071001

REACTIONS (7)
  - CARDIAC TAMPONADE [None]
  - DYSPNOEA [None]
  - PLEUROPERICARDITIS [None]
  - PRODUCTIVE COUGH [None]
  - PYREXIA [None]
  - SCAR PAIN [None]
  - TACHYCARDIA [None]
